FAERS Safety Report 7622224 (Version 2)
Quarter: 2012Q4

REPORT INFORMATION
  Report Type: 
  Country: US (occurrence: US)
  Receive Date: 20101008
  Receipt Date: 20120911
  Transmission Date: 20130627
  Serious: Yes (Other)
  Sender: FDA-Public Use
  Company Number: US-JNJFOC-20101000782

PATIENT
  Age: 22 Year
  Sex: Female
  Weight: 81.65 kg

DRUGS (1)
  1. NECON 777 [Suspect]
     Indication: CONTRACEPTION
     Route: 048
     Dates: start: 2004

REACTIONS (3)
  - Cervix operation [Unknown]
  - Vaginal discharge [Recovered/Resolved]
  - Vaginal haemorrhage [Unknown]
